FAERS Safety Report 7212027-5 (Version None)
Quarter: 2010Q4

REPORT INFORMATION
  Report Type: 
  Country: None (occurrence: None)
  Receive Date: 20101228
  Receipt Date: 20101213
  Transmission Date: 20110411
  Serious: Yes (Other)
  Sender: FDA-Public Use
  Company Number: 2010S1000403

PATIENT
  Age: 25 Year
  Sex: Male

DRUGS (5)
  1. DARVON [Suspect]
     Indication: BACK PAIN
     Dosage: PRN, PO
     Route: 048
     Dates: start: 20040101, end: 20101101
  2. DARVON [Suspect]
     Indication: ULCER
     Dosage: PRN, PO
     Route: 048
     Dates: start: 20040101, end: 20101101
  3. DEPAKOTE [Concomitant]
  4. KLONOPIN [Concomitant]
  5. TOPAMAX [Concomitant]

REACTIONS (8)
  - CONVULSION [None]
  - DECREASED APPETITE [None]
  - DEPRESSED LEVEL OF CONSCIOUSNESS [None]
  - DIARRHOEA [None]
  - DISEASE RECURRENCE [None]
  - PAIN [None]
  - POSTURE ABNORMAL [None]
  - VOMITING [None]
